FAERS Safety Report 21776115 (Version 2)
Quarter: 2023Q2

REPORT INFORMATION
  Report Type: Spontaneous
  Country: FR (occurrence: FR)
  Receive Date: 20221226
  Receipt Date: 20230419
  Transmission Date: 20230722
  Serious: Yes (Hospitalization)
  Sender: FDA-Public Use
  Company Number: FR-SA-2020SA076147

PATIENT
  Age: 72 Year
  Sex: Female
  Weight: 40 kg

DRUGS (11)
  1. IRINOTECAN [Suspect]
     Active Substance: IRINOTECAN
     Indication: Colorectal cancer metastatic
     Dosage: CYCLICAL (QCY)
     Route: 042
     Dates: start: 20190730, end: 20190730
  2. IRINOTECAN [Suspect]
     Active Substance: IRINOTECAN
     Dosage: CYCLICAL (QCY)
     Route: 042
     Dates: start: 20191008, end: 20191008
  3. AFLIBERCEPT [Suspect]
     Active Substance: AFLIBERCEPT
     Indication: Colorectal cancer metastatic
     Dosage: UNK UNK, CYCLICAL (QCY)
     Route: 042
     Dates: start: 20190730, end: 20190730
  4. AFLIBERCEPT [Suspect]
     Active Substance: AFLIBERCEPT
     Dosage: UNK UNK, CYCLICAL (QCY)
     Route: 042
     Dates: start: 20191008, end: 20191008
  5. FLUOROURACIL [Suspect]
     Active Substance: FLUOROURACIL
     Indication: Colorectal cancer metastatic
     Dosage: UNK UNK, CYCLICAL (QCY)
     Route: 042
     Dates: start: 20190730, end: 20190730
  6. FLUOROURACIL [Suspect]
     Active Substance: FLUOROURACIL
     Dosage: UNK UNK, CYCLICAL (QCY)
     Route: 042
     Dates: start: 20191008, end: 20191008
  7. LEUCOVORIN [Suspect]
     Active Substance: LEUCOVORIN
     Indication: Colorectal cancer metastatic
     Dosage: UNK UNK, CYCLICAL (QCY)
     Route: 042
     Dates: start: 20190730, end: 20190730
  8. LEUCOVORIN [Suspect]
     Active Substance: LEUCOVORIN
     Dosage: UNK UNK, CYCLICAL (QCY)
     Route: 042
     Dates: start: 20191008, end: 20191008
  9. DIETARY SUPPLEMENT [Concomitant]
     Active Substance: DIETARY SUPPLEMENT
     Indication: Nutritional supplementation
     Dosage: UNK UNK, TWO TIMES A DAY
     Route: 048
     Dates: start: 20190730
  10. LEVOTHYROXINE [Concomitant]
     Active Substance: LEVOTHYROXINE
     Indication: Thyroid disorder
     Dosage: 75 MILLIGRAM, ONCE A DAY
     Route: 048
     Dates: start: 20190820
  11. LOVENOX [Concomitant]
     Active Substance: ENOXAPARIN SODIUM
     Indication: Thrombosis prophylaxis
     Dosage: 0.4 MILLIGRAM, ONCE A DAY
     Route: 058
     Dates: start: 20191012

REACTIONS (3)
  - General physical health deterioration [Recovered/Resolved]
  - Decreased appetite [Recovering/Resolving]
  - Discomfort [Recovering/Resolving]

NARRATIVE: CASE EVENT DATE: 20191012
